FAERS Safety Report 9936746 (Version 1)
Quarter: 2014Q1

REPORT INFORMATION
  Report Type: Spontaneous
  Country: US (occurrence: None)
  Receive Date: 20140107
  Receipt Date: 20140107
  Transmission Date: 20141002
  Serious: Yes (Hospitalization)
  Sender: FDA-Public Use
  Company Number: 2011AP001024

PATIENT
  Sex: Female

DRUGS (1)
  1. LAMOTRIGINE TABLETS [Suspect]
     Indication: CONVULSION
     Route: 048
     Dates: start: 20090505

REACTIONS (1)
  - Stevens-Johnson syndrome [None]
